FAERS Safety Report 8271446-9 (Version None)
Quarter: 2012Q2

REPORT INFORMATION
  Report Type: 
  Country: None (occurrence: None)
  Receive Date: 20120410
  Receipt Date: 20120404
  Transmission Date: 20120825
  Serious: Yes (Hospitalization)
  Sender: FDA-Public Use
  Company Number: KR-BAYER-2012-032477

PATIENT
  Age: 36 Year
  Sex: Male

DRUGS (2)
  1. BETASERON [Suspect]
     Dosage: 250 ?G, QOD
     Route: 058
  2. BETASERON [Suspect]
     Indication: RELAPSING-REMITTING MULTIPLE SCLEROSIS
     Dosage: 250 ?G, QOD
     Route: 058
     Dates: start: 20080901

REACTIONS (4)
  - MUSCULAR WEAKNESS [None]
  - MUSCLE HAEMORRHAGE [None]
  - PAIN IN EXTREMITY [None]
  - OEDEMA PERIPHERAL [None]
